FAERS Safety Report 13844984 (Version 1)
Quarter: 2017Q3

REPORT INFORMATION
  Report Type: Report from Study
  Country: BR (occurrence: BR)
  Receive Date: 20170808
  Receipt Date: 20170808
  Transmission Date: 20171127
  Serious: Yes (Other)
  Sender: FDA-Public Use
  Company Number: PHHY2017BR115890

PATIENT
  Sex: Female

DRUGS (1)
  1. EXELON PATCH [Suspect]
     Active Substance: RIVASTIGMINE
     Indication: PRODUCT USED FOR UNKNOWN INDICATION
     Route: 062

REACTIONS (8)
  - Malaise [Unknown]
  - Disturbance in attention [Unknown]
  - Diabetes mellitus [Unknown]
  - Hallucination, visual [Unknown]
  - Anxiety [Unknown]
  - Fall [Unknown]
  - Anger [Unknown]
  - Nervousness [Unknown]
